FAERS Safety Report 14959522 (Version 1)
Quarter: 2018Q2

REPORT INFORMATION
  Report Type: Spontaneous
  Country: US (occurrence: US)
  Receive Date: 20180531
  Receipt Date: 20180531
  Transmission Date: 20180711
  Serious: No
  Sender: FDA-Public Use
  Company Number: US-PERRIGO-17US025110

PATIENT
  Sex: Female
  Weight: 61.22 kg

DRUGS (2)
  1. MINOXIDIL. [Suspect]
     Active Substance: MINOXIDIL
     Dosage: UNKNOWN, QD
     Route: 061
     Dates: start: 201707, end: 20170711
  2. MINOXIDIL. [Suspect]
     Active Substance: MINOXIDIL
     Indication: ALOPECIA
     Dosage: 1/2 CAPFUL QD
     Route: 061
     Dates: start: 2015, end: 201706

REACTIONS (2)
  - Product administered at inappropriate site [Unknown]
  - Wrong technique in product usage process [Recovered/Resolved]

NARRATIVE: CASE EVENT DATE: 2015
